FAERS Safety Report 18198330 (Version 1)
Quarter: 2020Q3

REPORT INFORMATION
  Report Type: Spontaneous
  Country: DE (occurrence: DE)
  Receive Date: 20200826
  Receipt Date: 20200826
  Transmission Date: 20201103
  Serious: Yes (Hospitalization)
  Sender: FDA-Public Use
  Company Number: DE-TEVA-2020-DE-1819663

PATIENT
  Age: 79 Year
  Sex: Female

DRUGS (10)
  1. URAPIDIL [Concomitant]
     Active Substance: URAPIDIL
     Dosage: 60 MILLIGRAM DAILY; 1?0?1?0
  2. BUPRENORPHINE. [Concomitant]
     Active Substance: BUPRENORPHINE
     Dosage: 5 MCG, WASH ALL 3 DAYS
  3. PREDNISOLON [Concomitant]
     Active Substance: PREDNISOLONE
     Dosage: 5 MILLIGRAM DAILY; 1?0?0?0
  4. HYDROMORPHON [Suspect]
     Active Substance: HYDROMORPHONE
     Dosage: NK MG, NK
     Route: 065
  5. PANTOPRAZOL [Concomitant]
     Active Substance: PANTOPRAZOLE SODIUM
     Dosage: 40 MILLIGRAM DAILY; 1?0?0?0
  6. TILIDINE/NALOXONE [Suspect]
     Active Substance: NALOXONE HYDROCHLORIDE\TILIDINE HYDROCHLORIDE
     Dosage: 2 DOSAGE FORMS DAILY; 8|100 MG, 1?0?1?0
  7. PEMBROLIZUMAB. [Suspect]
     Active Substance: PEMBROLIZUMAB
     Dosage: NK
  8. LEVOTHYROXIN?NATRIUM [Concomitant]
     Active Substance: LEVOTHYROXINE SODIUM
     Dosage: 75 MICROGRAM DAILY; 1?0?0?0
  9. RAMIPRIL. [Concomitant]
     Active Substance: RAMIPRIL
     Dosage: 10 MILLIGRAM DAILY;  1?0?1?0
  10. AMLODIPIN [Concomitant]
     Active Substance: AMLODIPINE BESYLATE
     Dosage: 10 MILLIGRAM DAILY; 1?0?1?0

REACTIONS (3)
  - Dehydration [Recovering/Resolving]
  - Aphasia [Recovering/Resolving]
  - Fall [Recovering/Resolving]
